FAERS Safety Report 18432650 (Version 1)
Quarter: 2020Q4

REPORT INFORMATION
  Report Type: Spontaneous
  Country: US (occurrence: US)
  Receive Date: 20201027
  Receipt Date: 20201027
  Transmission Date: 20210114
  Serious: Yes (Other)
  Sender: FDA-Public Use
  Company Number: US-PURDUE-USA-2020-0169763

PATIENT
  Sex: Male

DRUGS (1)
  1. OXYCONTIN [Suspect]
     Active Substance: OXYCODONE HYDROCHLORIDE
     Indication: PRODUCT USED FOR UNKNOWN INDICATION
     Dosage: UNK
     Route: 048
     Dates: start: 200911, end: 201803

REACTIONS (8)
  - Amnesia [Unknown]
  - Cerebrovascular accident [Recovered/Resolved with Sequelae]
  - Hypothalamo-pituitary disorder [Unknown]
  - Drug dependence [Unknown]
  - Blood testosterone decreased [Unknown]
  - Hyperthyroidism [Unknown]
  - Addison^s disease [Unknown]
  - Drug detoxification [Unknown]
